FAERS Safety Report 6423766-8 (Version None)
Quarter: 2009Q4

REPORT INFORMATION
  Report Type: 
  Country: None (occurrence: None)
  Receive Date: 20091028
  Receipt Date: 20091015
  Transmission Date: 20100525
  Serious: Yes (Other)
  Sender: FDA-Public Use
  Company Number: DE-1169874

PATIENT
  Age: 70 Year
  Sex: Female

DRUGS (1)
  1. FLUORESCITE [Suspect]
     Dosage: 5 ML OVER 8-15 SECONDS INTRAVENOUS BOLUS
     Route: 040

REACTIONS (2)
  - DYSPNOEA [None]
  - PARAESTHESIA [None]
